FAERS Safety Report 13840251 (Version 1)
Quarter: 2017Q3

REPORT INFORMATION
  Report Type: Spontaneous
  Country: US (occurrence: US)
  Receive Date: 20170807
  Receipt Date: 20170807
  Transmission Date: 20171127
  Serious: Yes (Disabling)
  Sender: FDA-Public Use
  Company Number: None

PATIENT
  Sex: Female
  Weight: 58.5 kg

DRUGS (2)
  1. LEVAQUIN [Suspect]
     Active Substance: LEVOFLOXACIN
     Indication: BRONCHITIS
     Dosage: ?          QUANTITY:1 TABLET(S);?ORAL
     Route: 048
     Dates: start: 20071207, end: 20071214
  2. LEVAQUIN [Suspect]
     Active Substance: LEVOFLOXACIN
     Indication: SINUSITIS
     Dosage: ?          QUANTITY:1 TABLET(S);?ORAL
     Route: 048
     Dates: start: 20071207, end: 20071214

REACTIONS (5)
  - Pain in extremity [None]
  - Skin burning sensation [None]
  - Fibromyalgia [None]
  - Pyrexia [None]
  - Impaired work ability [None]

NARRATIVE: CASE EVENT DATE: 20071207
